FAERS Safety Report 7394313-1 (Version None)
Quarter: 2011Q2

REPORT INFORMATION
  Report Type: 
  Country: None (occurrence: None)
  Receive Date: 20110405
  Receipt Date: 20110329
  Transmission Date: 20111010
  Serious: Yes (Hospitalization, Other)
  Sender: FDA-Public Use
  Company Number: US-ROCHE-701304

PATIENT
  Sex: Female
  Weight: 54.4 kg

DRUGS (3)
  1. ACCUTANE [Suspect]
     Indication: ACNE
     Route: 065
     Dates: start: 20001028, end: 20010317
  2. LEVOXYL [Concomitant]
     Indication: HYPOTHYROIDISM
  3. MINOCYCLINE [Concomitant]
     Indication: ACNE

REACTIONS (8)
  - COLITIS ULCERATIVE [None]
  - SMALL INTESTINAL OBSTRUCTION [None]
  - GASTROINTESTINAL INJURY [None]
  - PULMONARY EMBOLISM [None]
  - INFLAMMATORY BOWEL DISEASE [None]
  - PHARYNGITIS [None]
  - CONJUNCTIVITIS [None]
  - ORAL HERPES [None]
